FAERS Safety Report 8815747 (Version 1)
Quarter: 2012Q4

REPORT INFORMATION
  Report Type: 
  Country: US (occurrence: US)
  Receive Date: 20120928
  Receipt Date: 20120928
  Transmission Date: 20130627
  Serious: No
  Sender: FDA-Public Use
  Company Number: US-009507513-1209USA006863

PATIENT
  Sex: Female

DRUGS (2)
  1. ZETIA [Suspect]
     Dosage: UNK
     Route: 048
     Dates: start: 2010
  2. CRESTOR [Concomitant]

REACTIONS (2)
  - Dizziness [Recovered/Resolved]
  - Diarrhoea [Recovered/Resolved]
